FAERS Safety Report 6820868-9 (Version None)
Quarter: 2010Q3

REPORT INFORMATION
  Report Type: 
  Country: None (occurrence: None)
  Receive Date: 20100707
  Receipt Date: 20070702
  Transmission Date: 20110219
  Serious: No
  Sender: FDA-Public Use
  Company Number: US-PFIZER INC-2007055679

PATIENT
  Sex: Female
  Weight: 100 kg

DRUGS (2)
  1. ZOLOFT [Suspect]
     Indication: PREMENSTRUAL SYNDROME
     Dates: start: 20070401
  2. ATIVAN [Concomitant]
     Dates: start: 20070401

REACTIONS (5)
  - DRUG INEFFECTIVE [None]
  - HYPOMENORRHOEA [None]
  - MENORRHAGIA [None]
  - MENSTRUAL DISORDER [None]
  - MENSTRUATION DELAYED [None]
